FAERS Safety Report 5317423-9 (Version None)
Quarter: 2007Q2

REPORT INFORMATION
  Report Type: 
  Country: None (occurrence: None)
  Receive Date: 20070507
  Receipt Date: 20070430
  Transmission Date: 20071010
  Serious: Yes (Other)
  Sender: FDA-Public Use
  Company Number: NLWYE566006FEB04

PATIENT
  Sex: Female
  Weight: 58.5 kg

DRUGS (6)
  1. RAPAMUNE [Suspect]
     Indication: PROPHYLAXIS AGAINST TRANSPLANT REJECTION
     Dosage: 15 MG
     Route: 048
     Dates: start: 20031201, end: 20031201
  2. RAPAMUNE [Suspect]
     Dosage: 12 MG
     Route: 048
     Dates: start: 20031201, end: 20031201
  3. RAPAMUNE [Suspect]
     Route: 048
     Dates: start: 20031215, end: 20040119
  4. PREDNISOLONE [Concomitant]
  5. DACLIZUMAB [Suspect]
     Indication: PROPHYLAXIS AGAINST TRANSPLANT REJECTION
     Dosage: 1 MG/KG
  6. MYCOPHENOLATE MOFETIL [Concomitant]

REACTIONS (2)
  - KIDNEY TRANSPLANT REJECTION [None]
  - RENAL TUBULAR NECROSIS [None]
